FAERS Safety Report 10137045 (Version 1)
Quarter: 2014Q2

REPORT INFORMATION
  Report Type: Spontaneous
  Country: TW (occurrence: None)
  Receive Date: 20140425
  Receipt Date: 20140425
  Transmission Date: 20141212
  Serious: Yes (Hospitalization)
  Sender: FDA-Public Use
  Company Number: TW-ALKEM-000567

PATIENT
  Age: 51 Year
  Sex: Female

DRUGS (3)
  1. QUETIAPINE (QUETIAPINE) [Suspect]
     Indication: BIPOLAR DISORDER
  2. VALPROIC ACID (VALPROIC ACID) [Concomitant]
  3. FLURAZEPAM (FLURAZEPAM) [Concomitant]

REACTIONS (2)
  - Hypertriglyceridaemia [None]
  - Pancreatitis acute [None]
